FAERS Safety Report 4841565-5 (Version None)
Quarter: 2005Q4

REPORT INFORMATION
  Report Type: 
  Country: None (occurrence: None)
  Receive Date: 20051130
  Receipt Date: 20050824
  Transmission Date: 20060501
  Serious: No
  Sender: FDA-Public Use
  Company Number: US-GLAXOSMITHKLINE-A0571620A

PATIENT
  Age: 35 Year
  Sex: Female

DRUGS (2)
  1. WELLBUTRIN XL [Suspect]
     Indication: DRUG USE FOR UNKNOWN INDICATION
     Dosage: 150MG PER DAY
     Route: 048
     Dates: start: 20050524
  2. ORTHO TRI-CYCLEN LO [Suspect]
     Route: 048
     Dates: start: 20050324

REACTIONS (4)
  - BREAST PAIN [None]
  - BREAST TENDERNESS [None]
  - METRORRHAGIA [None]
  - NIPPLE DISORDER [None]
